FAERS Safety Report 8427537-2 (Version None)
Quarter: 2012Q2

REPORT INFORMATION
  Report Type: 
  Country: None (occurrence: None)
  Receive Date: 20120611
  Receipt Date: 20120530
  Transmission Date: 20120825
  Serious: Yes (Death, Other)
  Sender: FDA-Public Use
  Company Number: GB-NOVOPROD-352728

PATIENT
  Age: 51 Year
  Sex: Female
  Weight: 160 kg

DRUGS (9)
  1. ACETAMINOPHEN AND CODEINE PHOSPHATE [Concomitant]
  2. SIMVASTATIN [Concomitant]
     Dosage: 40 MG, QD
  3. METFORMIN HCL [Concomitant]
     Dosage: 1 G, BID
  4. PERINDOPRIL ERBUMINE [Concomitant]
     Dosage: 4 MG, QD
  5. TRIMOVATE                          /00456501/ [Concomitant]
  6. VICTOZA [Suspect]
     Indication: PRODUCT USED FOR UNKNOWN INDICATION
     Dosage: 1.2 MG, QD
     Route: 058
     Dates: start: 20110810, end: 20120412
  7. FLUCLOXACILLIN [Concomitant]
     Dosage: 500 MG, UNK
  8. GLICLAZIDE [Concomitant]
     Dosage: 80 MG, BID
  9. DICLOFENAC SODIUM [Concomitant]

REACTIONS (6)
  - SEPSIS [None]
  - MULTI-ORGAN FAILURE [None]
  - LIVER FUNCTION TEST ABNORMAL [None]
  - ALANINE AMINOTRANSFERASE INCREASED [None]
  - BILE DUCT CANCER [None]
  - BLOOD ALKALINE PHOSPHATASE INCREASED [None]
